FAERS Safety Report 9236908 (Version 1)
Quarter: 2013Q2

REPORT INFORMATION
  Report Type: Spontaneous
  Country: US (occurrence: US)
  Receive Date: 20130417
  Receipt Date: 20130417
  Transmission Date: 20140414
  Serious: Yes (Death, Hospitalization, Other)
  Sender: FDA-Public Use
  Company Number: US-PFIZER INC-HQWYE040813MAR03

PATIENT
  Age: 37 Year
  Sex: Female
  Weight: 66 kg

DRUGS (25)
  1. EFFEXOR XR [Suspect]
     Dosage: 75 MG, 2X/DAY
     Route: 048
  2. IBUPROFEN [Suspect]
     Indication: ILL-DEFINED DISORDER
     Dosage: 800 MG, 3X/DAY
     Route: 048
  3. VENLAFAXINE HCL [Suspect]
     Indication: ILL-DEFINED DISORDER
     Dosage: 75 MG, 3X/DAY
     Route: 048
  4. NEURONTIN [Suspect]
     Indication: ALCOHOLIC SEIZURE
     Dosage: 100 MG, 3X/DAY
     Route: 048
     Dates: start: 199512
  5. NEURONTIN [Suspect]
     Indication: BIPOLAR DISORDER
     Dosage: 400 MG, 2X/DAY
     Route: 048
     Dates: start: 20011030
  6. NEURONTIN [Suspect]
     Indication: MOVEMENT DISORDER
  7. NEURONTIN [Suspect]
     Indication: PAIN
  8. NEURONTIN [Suspect]
     Indication: ALCOHOLIC SEIZURE
     Dosage: 300 MG, 1X/DAY
     Route: 048
     Dates: start: 19951108
  9. NEURONTIN [Suspect]
     Indication: BIPOLAR DISORDER
     Dosage: 600 MG, 3X/DAY
     Route: 048
     Dates: start: 20021016
  10. NEURONTIN [Suspect]
     Indication: MOVEMENT DISORDER
  11. NEURONTIN [Suspect]
     Indication: PAIN
  12. OXYCODONE HYDROCHLORIDE [Suspect]
     Indication: ILL-DEFINED DISORDER
     Dosage: 80 MG, UNK
  13. ELAVIL [Suspect]
     Dosage: UNK
     Route: 048
  14. MOTRIN [Suspect]
     Dosage: UNK
     Route: 048
  15. AMITRIPTYLINE HYDROCHLORIDE [Suspect]
     Indication: ILL-DEFINED DISORDER
     Dosage: 100 MG, 1X/DAY
     Route: 048
  16. NORTRIPTYLINE HYDROCHLORIDE [Suspect]
     Indication: ILL-DEFINED DISORDER
     Dosage: UNK
  17. BISELECT [Concomitant]
     Indication: ILL-DEFINED DISORDER
     Dosage: UNK
  18. BUSPIRONE [Concomitant]
     Dosage: 15 MG, UNK
     Route: 048
  19. VERAPAMIL [Concomitant]
     Dosage: 240 MG, 2X/DAY
     Route: 048
  20. ALBUTEROL [Concomitant]
     Dosage: UNK
     Route: 055
  21. SUMATRIPTAN [Concomitant]
     Dosage: 6 MG, UNK
  22. TEMAZEPAM [Concomitant]
     Dosage: 30 MG, 1X/DAY
     Route: 048
  23. LIDOCAINE [Concomitant]
     Dosage: UNK
     Route: 062
  24. OXAZEPAM [Concomitant]
     Dosage: UNK
  25. SOMA [Concomitant]
     Dosage: UNK

REACTIONS (14)
  - Overdose [Fatal]
  - Completed suicide [Fatal]
  - Cardiac arrest [Unknown]
  - Suicidal ideation [Unknown]
  - Major depression [Unknown]
  - Consciousness fluctuating [Unknown]
  - Homicidal ideation [Unknown]
  - Intentional drug misuse [Unknown]
  - Loss of consciousness [Recovered/Resolved]
  - Drug ineffective [Unknown]
  - Laceration [Unknown]
  - Contusion [Unknown]
  - Confusional state [Unknown]
  - Swelling [Unknown]
